FAERS Safety Report 5311978-6 (Version None)
Quarter: 2007Q2

REPORT INFORMATION
  Report Type: 
  Country: None (occurrence: None)
  Receive Date: 20070430
  Receipt Date: 20060621
  Transmission Date: 20071010
  Serious: No
  Sender: FDA-Public Use
  Company Number: 2006UW13177

PATIENT
  Age: 49 Year
  Sex: Female
  Weight: 54.4 kg

DRUGS (3)
  1. NEXIUM [Suspect]
     Indication: GASTROOESOPHAGEAL REFLUX DISEASE
     Route: 048
  2. LOESTRIN [Concomitant]
  3. ACYCLOVIR [Concomitant]

REACTIONS (3)
  - DEPRESSION [None]
  - FLAT AFFECT [None]
  - IRRITABILITY [None]
